FAERS Safety Report 9362033 (Version 2)
Quarter: 2013Q3

REPORT INFORMATION
  Report Type: Spontaneous
  Country: US (occurrence: US)
  Receive Date: 20130621
  Receipt Date: 20130812
  Transmission Date: 20140515
  Serious: No
  Sender: FDA-Public Use
  Company Number: US-009507513-1306USA009605

PATIENT
  Age: 28 Year
  Sex: Female
  Weight: 122.9 kg

DRUGS (1)
  1. NEXPLANON [Suspect]
     Dosage: 68 MG EVERY THREE YEARS
     Route: 059
     Dates: start: 20130613

REACTIONS (3)
  - Device difficult to use [Recovered/Resolved]
  - Product quality issue [Unknown]
  - No adverse event [Unknown]
